FAERS Safety Report 5533954-0 (Version None)
Quarter: 2007Q4

REPORT INFORMATION
  Report Type: 
  Country: None (occurrence: None)
  Receive Date: 20071129
  Receipt Date: 20071107
  Transmission Date: 20080405
  Serious: Yes (Other)
  Sender: FDA-Public Use
  Company Number: 8028212

PATIENT
  Age: 8 Year
  Sex: Male
  Weight: 27.7 kg

DRUGS (2)
  1. EQUASYM [Suspect]
     Dosage: 10 MG /D
     Dates: start: 20061207
  2. EQUASYM [Suspect]
     Dosage: 30 MG /D

REACTIONS (1)
  - TIC [None]
